FAERS Safety Report 15215852 (Version 1)
Quarter: 2018Q3

REPORT INFORMATION
  Report Type: Report from Study
  Country: FR (occurrence: FR)
  Receive Date: 20180730
  Receipt Date: 20180730
  Transmission Date: 20181010
  Serious: Yes (Hospitalization)
  Sender: FDA-Public Use
  Company Number: FR-PFIZER INC-2018296763

PATIENT
  Age: 52 Year
  Sex: Male
  Weight: 168 kg

DRUGS (17)
  1. FOLINIC ACID [Suspect]
     Active Substance: LEUCOVORIN
     Indication: COLORECTAL CANCER METASTATIC
     Dosage: 696 MG, CYCLIC
     Route: 041
     Dates: start: 20160218, end: 20160218
  2. AFLIBERCEPT [Suspect]
     Active Substance: AFLIBERCEPT
     Dosage: 221 MG, UNK
     Route: 041
     Dates: start: 20170127, end: 20170127
  3. PRIMPERAN [Concomitant]
     Active Substance: METOCLOPRAMIDE HYDROCHLORIDE
     Indication: NAUSEA
     Dosage: UNK
     Dates: start: 20160303
  4. IMODIUM [Concomitant]
     Active Substance: LOPERAMIDE HYDROCHLORIDE
     Indication: DIARRHOEA
     Dosage: UNK
     Route: 065
     Dates: start: 20160219
  5. SPASFON LYOC [Concomitant]
     Active Substance: PHLOROGLUCINOL
     Indication: PAIN
     Dosage: UNK
     Dates: start: 20160127
  6. FLUOROURACIL. [Suspect]
     Active Substance: FLUOROURACIL
     Dosage: 4175 MG, CYCLIC
     Route: 040
     Dates: start: 20170127, end: 20170127
  7. FOLINIC ACID [Suspect]
     Active Substance: LEUCOVORIN
     Dosage: 696 MG, CYCLIC
     Route: 041
     Dates: start: 20170127, end: 20170127
  8. FLUOROURACIL. [Suspect]
     Active Substance: FLUOROURACIL
     Indication: COLORECTAL CANCER METASTATIC
     Dosage: 700 MG, CYCLIC
     Route: 040
     Dates: start: 20160218, end: 20160218
  9. IRINOTECAN HCL [Suspect]
     Active Substance: IRINOTECAN HYDROCHLORIDE
     Indication: COLORECTAL CANCER METASTATIC
     Dosage: 270 MG, CYCLIC
     Route: 041
     Dates: start: 20160218, end: 20160218
  10. FLUOROURACIL. [Suspect]
     Active Substance: FLUOROURACIL
     Dosage: 700 MG, UNK
     Route: 041
     Dates: start: 20160218, end: 20160218
  11. FLUOROURACIL. [Suspect]
     Active Substance: FLUOROURACIL
     Dosage: 4175 MG, UNK
     Route: 041
     Dates: start: 20170127, end: 20170127
  12. LOVENOX [Concomitant]
     Active Substance: ENOXAPARIN SODIUM
     Dosage: UNK
     Route: 065
     Dates: start: 20160127
  13. KARDEGIC [Concomitant]
     Active Substance: ASPIRIN DL-LYSINE
     Indication: PYREXIA
     Dosage: UNK
     Dates: start: 20160303
  14. INEXIUM /01479302/ [Concomitant]
     Active Substance: ESOMEPRAZOLE MAGNESIUM
     Indication: PAIN
     Dosage: UNK
     Route: 065
     Dates: start: 20160127, end: 20160127
  15. PARACETAMOL [Concomitant]
     Active Substance: ACETAMINOPHEN
     Indication: PAIN
     Dosage: UNK
     Route: 065
     Dates: start: 20160127
  16. SOLUPRED /00016217/ [Concomitant]
     Active Substance: PREDNISOLONE SODIUM METAZOATE
     Indication: VOMITING
     Dosage: UNK
     Route: 065
     Dates: start: 20160303
  17. AFLIBERCEPT [Suspect]
     Active Substance: AFLIBERCEPT
     Indication: COLORECTAL CANCER METASTATIC
     Dosage: 221 MG, CYCLIC
     Route: 041
     Dates: start: 20160218, end: 20170218

REACTIONS (2)
  - General physical health deterioration [Recovered/Resolved]
  - Decreased appetite [Recovered/Resolved]

NARRATIVE: CASE EVENT DATE: 20170203
